FAERS Safety Report 11139716 (Version 2)
Quarter: 2015Q3

REPORT INFORMATION
  Report Type: Spontaneous
  Country: JP (occurrence: JP)
  Receive Date: 20150527
  Receipt Date: 20150706
  Transmission Date: 20151125
  Serious: No
  Sender: FDA-Public Use
  Company Number: JP-ELI_LILLY_AND_COMPANY-JP201505008987

PATIENT
  Age: 87 Year
  Sex: Male

DRUGS (5)
  1. DIOVAN [Concomitant]
     Active Substance: VALSARTAN
  2. BASEN                              /01290601/ [Concomitant]
     Active Substance: VOGLIBOSE
  3. ZALUTIA [Suspect]
     Active Substance: TADALAFIL
     Indication: PRODUCT USED FOR UNKNOWN INDICATION
     Dosage: UNK
     Route: 048
     Dates: start: 20150301, end: 201504
  4. NORVASC [Concomitant]
     Active Substance: AMLODIPINE BESYLATE
  5. LENDORMIN [Concomitant]
     Active Substance: BROTIZOLAM

REACTIONS (1)
  - Vision blurred [Not Recovered/Not Resolved]
